FAERS Safety Report 14520566 (Version 2)
Quarter: 2018Q2

REPORT INFORMATION
  Report Type: Report from Study
  Country: None (occurrence: JP)
  Receive Date: 20180212
  Receipt Date: 20180423
  Transmission Date: 20180711
  Serious: Yes (Life-Threatening, Hospitalization, Disabling)
  Sender: FDA-Public Use
  Company Number: JP-ABBVIE-18P-087-2248626-00

PATIENT
  Age: 90 Year
  Sex: Female
  Weight: 31.2 kg

DRUGS (26)
  1. CYTARABINE. [Suspect]
     Active Substance: CYTARABINE
     Indication: ACUTE MYELOID LEUKAEMIA
     Dosage: DAILY ON DAYS 1- 10 OF A 28 DAY CYCLE
     Route: 058
     Dates: start: 20171023, end: 20180205
  2. AMLODIPINE [Concomitant]
     Active Substance: AMLODIPINE BESYLATE
     Indication: HYPERTENSION
     Route: 048
     Dates: start: 2011, end: 20180205
  3. MAGNESIUM OXIDE. [Concomitant]
     Active Substance: MAGNESIUM OXIDE
     Indication: CONSTIPATION
     Route: 048
     Dates: start: 2011, end: 20171029
  4. MEROPENEM. [Concomitant]
     Active Substance: MEROPENEM
     Route: 041
     Dates: start: 20180201
  5. VENETOCLAX. [Suspect]
     Active Substance: VENETOCLAX
     Route: 048
     Dates: start: 20171024, end: 20171024
  6. FEBUXOSTAT. [Concomitant]
     Active Substance: FEBUXOSTAT
     Indication: PROPHYLAXIS
     Route: 048
     Dates: start: 20171022, end: 20171027
  7. RABEPRAZOLE NA [Concomitant]
     Active Substance: RABEPRAZOLE SODIUM
     Indication: GASTROOESOPHAGEAL REFLUX DISEASE
     Route: 048
     Dates: start: 2011, end: 20180205
  8. MOSAPRIDE CITRATE [Concomitant]
     Active Substance: MOSAPRIDE CITRATE
     Indication: GASTRIC DISORDER
  9. MEROPENEM. [Concomitant]
     Active Substance: MEROPENEM
     Indication: FEBRILE NEUTROPENIA
     Route: 041
     Dates: start: 20171023, end: 20171024
  10. MEROPENEM. [Concomitant]
     Active Substance: MEROPENEM
     Route: 041
     Dates: start: 20180110, end: 20180116
  11. HIRUDOID [Concomitant]
     Active Substance: GLYCOSAMINOGLYCANS
     Indication: DRY SKIN
     Dosage: OPTIMAL DOSE
     Route: 061
     Dates: start: 20171128, end: 20180205
  12. MOSAPRIDE CITRATE [Concomitant]
     Active Substance: MOSAPRIDE CITRATE
     Indication: PROPHYLAXIS
     Route: 048
     Dates: start: 2011
  13. DERMOSOL-G [Concomitant]
     Indication: PERIPHERAL SWELLING
     Dosage: OPTIMAL DOSE
     Route: 061
     Dates: start: 20171229
  14. MAGNESIUM OXIDE. [Concomitant]
     Active Substance: MAGNESIUM OXIDE
     Route: 048
     Dates: start: 20171030
  15. WHITE PETROLATUM [Concomitant]
     Active Substance: PETROLATUM
     Indication: LACERATION
     Dosage: OPTIMAL DOSE
     Route: 061
     Dates: start: 20171025, end: 20180205
  16. SENNOSIDE [Concomitant]
     Active Substance: SENNOSIDES
     Indication: CONSTIPATION
     Route: 048
     Dates: start: 20171123
  17. VENETOCLAX. [Suspect]
     Active Substance: VENETOCLAX
     Route: 048
     Dates: start: 20171025, end: 20171025
  18. GRANISETRON [Concomitant]
     Active Substance: GRANISETRON
     Indication: PROPHYLAXIS OF NAUSEA AND VOMITING
     Route: 041
     Dates: start: 20171023, end: 20171025
  19. MEROPENEM. [Concomitant]
     Active Substance: MEROPENEM
     Route: 041
     Dates: start: 20171025, end: 20171103
  20. MEROPENEM. [Concomitant]
     Active Substance: MEROPENEM
     Route: 041
     Dates: start: 20171113, end: 20171122
  21. VENETOCLAX. [Suspect]
     Active Substance: VENETOCLAX
     Route: 048
     Dates: start: 20171026, end: 20180205
  22. HARTMANN [Concomitant]
     Active Substance: CALCIUM CHLORIDE\POTASSIUM CHLORIDE\SODIUM CHLORIDE\SODIUM LACTATE
     Indication: PROPHYLAXIS
     Route: 042
     Dates: start: 20171023, end: 20171031
  23. NORMAL SALINE [Concomitant]
     Active Substance: SODIUM CHLORIDE
     Indication: MEDICATION DILUTION
     Route: 042
     Dates: start: 20180110, end: 20180116
  24. VENETOCLAX. [Suspect]
     Active Substance: VENETOCLAX
     Indication: ACUTE MYELOID LEUKAEMIA
     Route: 048
     Dates: start: 20171023, end: 20171023
  25. GRANISETRON [Concomitant]
     Active Substance: GRANISETRON
     Route: 041
     Dates: start: 20180131
  26. NORMAL SALINE [Concomitant]
     Active Substance: SODIUM CHLORIDE
     Route: 042
     Dates: start: 20180201

REACTIONS (1)
  - Haemorrhage intracranial [Not Recovered/Not Resolved]

NARRATIVE: CASE EVENT DATE: 20180206
